FAERS Safety Report 5918933-3 (Version None)
Quarter: 2008Q4

REPORT INFORMATION
  Report Type: 
  Country: None (occurrence: None)
  Receive Date: 20081015
  Receipt Date: 20081008
  Transmission Date: 20090506
  Serious: Yes (Death)
  Sender: FDA-Public Use
  Company Number: US-ROCHE-590537

PATIENT
  Sex: Male
  Weight: 94.8 kg

DRUGS (1)
  1. CAPECITABINE [Suspect]
     Indication: COLORECTAL CANCER
     Dosage: DOSE: 2000 MG AM AND 2000 MG PM.
     Route: 048

REACTIONS (1)
  - DEATH [None]
